FAERS Safety Report 25644424 (Version 1)
Quarter: 2025Q3

REPORT INFORMATION
  Report Type: Spontaneous
  Country: US (occurrence: US)
  Receive Date: 20250805
  Receipt Date: 20250805
  Transmission Date: 20251020
  Serious: Yes (Other)
  Sender: GALDERMA
  Company Number: US-GALDERMA-US2025013807

PATIENT

DRUGS (1)
  1. NEMLUVIO [Suspect]
     Active Substance: NEMOLIZUMAB-ILTO
     Indication: Dermatitis atopic
     Route: 058
     Dates: start: 2025, end: 2025

REACTIONS (3)
  - Hip fracture [Recovering/Resolving]
  - Fall [Recovering/Resolving]
  - Lower limb fracture [Recovering/Resolving]

NARRATIVE: CASE EVENT DATE: 20250704
